FAERS Safety Report 10174190 (Version 1)
Quarter: 2014Q2

REPORT INFORMATION
  Report Type: Spontaneous
  Country: US (occurrence: US)
  Receive Date: 20140515
  Receipt Date: 20140515
  Transmission Date: 20141212
  Serious: No
  Sender: FDA-Public Use
  Company Number: US-009507513-1405USA002775

PATIENT
  Age: 89 Year
  Sex: Male
  Weight: 63.1 kg

DRUGS (1)
  1. DEXAMETHASONE [Suspect]
     Indication: PLASMA CELL MYELOMA
     Dosage: UNK , DAILY
     Route: 048
     Dates: start: 20140108, end: 20140223

REACTIONS (1)
  - Mental status changes [Recovered/Resolved]
